FAERS Safety Report 4382216-6 (Version None)
Quarter: 2004Q2

REPORT INFORMATION
  Report Type: 
  Country: None (occurrence: None)
  Receive Date: 20040618
  Receipt Date: 20040618
  Transmission Date: 20050107
  Serious: Yes (Hospitalization)
  Sender: FDA-Public Use
  Company Number: None

PATIENT
  Age: 73 Year
  Sex: Male
  Weight: 67.6 kg

DRUGS (12)
  1. INTEGRILIN [Suspect]
     Indication: ANTIPLATELET THERAPY
     Dosage: 2( 6.0 ML BOLUSES) 5.5ML/HR IV
     Route: 040
     Dates: start: 20040614, end: 20040615
  2. HEPARIN [Suspect]
     Dosage: 3,380 UNITS BOLUS IV
     Route: 040
     Dates: start: 20040614
  3. MIDAZOLAM HCL [Concomitant]
  4. FENTANYL [Concomitant]
  5. LIDOCAINE [Concomitant]
  6. VERAPAMIL [Concomitant]
  7. NITROGLYCERIN [Concomitant]
  8. ACETYLCYSTEINE [Concomitant]
  9. ASPIRIN [Concomitant]
  10. VALIUM [Concomitant]
  11. CLOPIDOGREL BISULFATE [Concomitant]
  12. DIPHENHYDRAMINE [Concomitant]

REACTIONS (3)
  - BLOOD CREATINE PHOSPHOKINASE MB INCREASED [None]
  - DRUG EFFECT DECREASED [None]
  - POST PROCEDURAL COMPLICATION [None]
